FAERS Safety Report 24694273 (Version 1)
Quarter: 2024Q4

REPORT INFORMATION
  Report Type: Spontaneous
  Country: US (occurrence: US)
  Receive Date: 20241204
  Receipt Date: 20241204
  Transmission Date: 20250115
  Serious: No
  Sender: TEVA
  Company Number: US-TEVA-VS-3264866

PATIENT
  Age: 78 Year
  Sex: Female
  Weight: 78.925 kg

DRUGS (1)
  1. ALBUTEROL SULFATE [Suspect]
     Active Substance: ALBUTEROL SULFATE
     Indication: Product used for unknown indication
     Dosage: INHALATION METERED DOSE AEROSOL, 90MCG/DOSE
     Route: 065

REACTIONS (4)
  - Weight fluctuation [Unknown]
  - Dyspnoea [Unknown]
  - Expired product administered [Unknown]
  - Therapeutic product effect incomplete [Unknown]
